FAERS Safety Report 5429172-7 (Version None)
Quarter: 2007Q3

REPORT INFORMATION
  Report Type: 
  Country: None (occurrence: None)
  Receive Date: 20070824
  Receipt Date: 20070806
  Transmission Date: 20080115
  Serious: Yes (Other)
  Sender: FDA-Public Use
  Company Number: OSCN-NO-0708S-0323

PATIENT
  Age: 27 Year
  Sex: Female

DRUGS (3)
  1. OMNISCAN [Suspect]
     Indication: DRUG USE FOR UNKNOWN INDICATION
     Dosage: 01. MMOL/KG, SINGLE DOSE; 0.1 MMOL/KG, SINGLE DOSE
     Dates: start: 20040708, end: 20040708
  2. OMNISCAN [Suspect]
     Indication: DRUG USE FOR UNKNOWN INDICATION
     Dosage: 01. MMOL/KG, SINGLE DOSE; 0.1 MMOL/KG, SINGLE DOSE
     Dates: start: 20050101, end: 20050101
  3. OMNISCAN [Suspect]
     Indication: DRUG USE FOR UNKNOWN INDICATION
     Dosage: 01. MMOL/KG, SINGLE DOSE; 0.1 MMOL/KG, SINGLE DOSE
     Dates: start: 20060101, end: 20060101

REACTIONS (1)
  - NEPHROGENIC SYSTEMIC FIBROSIS [None]
